FAERS Safety Report 6807562-5 (Version None)
Quarter: 2010Q2

REPORT INFORMATION
  Report Type: 
  Country: None (occurrence: None)
  Receive Date: 20100629
  Receipt Date: 20081216
  Transmission Date: 20101027
  Serious: Yes (Other)
  Sender: FDA-Public Use
  Company Number: US-PFIZER INC-2008098805

PATIENT

DRUGS (3)
  1. VIAGRA [Suspect]
     Indication: ERECTILE DYSFUNCTION
     Dosage: 50 MG, SINGLE
  2. STATINS [Concomitant]
  3. SIMVASTATIN [Concomitant]

REACTIONS (1)
  - CEREBRAL HAEMORRHAGE [None]
